FAERS Safety Report 7098280-X (Version None)
Quarter: 2010Q4

REPORT INFORMATION
  Report Type: 
  Country: None (occurrence: None)
  Receive Date: 20101112
  Receipt Date: 20100909
  Transmission Date: 20110411
  Serious: No
  Sender: FDA-Public Use
  Company Number: A0874636A

PATIENT
  Age: 29 Year
  Sex: Female
  Weight: 54.5 kg

DRUGS (2)
  1. TREXIMET [Suspect]
     Dosage: 1TAB AS REQUIRED
     Route: 048
     Dates: start: 20080801, end: 20100730
  2. NO CONCURRENT MEDICATION [Concomitant]

REACTIONS (1)
  - ALOPECIA [None]
